FAERS Safety Report 13775633 (Version 1)
Quarter: 2017Q3

REPORT INFORMATION
  Report Type: Spontaneous
  Country: US (occurrence: US)
  Receive Date: 20170720
  Receipt Date: 20170720
  Transmission Date: 20171127
  Serious: No
  Sender: FDA-Public Use
  Company Number: US-BAUSCH-BL-2017-008541

PATIENT
  Age: 62 Year
  Sex: Female

DRUGS (5)
  1. LOTEMAX [Suspect]
     Active Substance: LOTEPREDNOL ETABONATE
     Dosage: IN LEFT EYE FOR SECOND WEEK
     Route: 047
     Dates: start: 2017
  2. BESIVANCE [Suspect]
     Active Substance: BESIFLOXACIN
     Indication: PREOPERATIVE CARE
     Dosage: EVERY HOUR 4-9PM, AND MORNING OF SURGERY 1 DROP
     Route: 047
     Dates: start: 20170326, end: 20170327
  3. LOTEMAX [Suspect]
     Active Substance: LOTEPREDNOL ETABONATE
     Indication: POSTOPERATIVE CARE
     Dosage: IN LEFT EYE FOR FIRST WEEK
     Route: 047
     Dates: start: 20170327
  4. LOTEMAX [Suspect]
     Active Substance: LOTEPREDNOL ETABONATE
     Dosage: IN LEFT EYE FOR FOURTH WEEK
     Route: 047
     Dates: start: 2017, end: 20170406
  5. LOTEMAX [Suspect]
     Active Substance: LOTEPREDNOL ETABONATE
     Dosage: IN LEFT EYE FOR THIRD WEEK
     Route: 047
     Dates: start: 2017

REACTIONS (3)
  - Off label use [Unknown]
  - Eye pain [Recovered/Resolved]
  - Nausea [Recovered/Resolved]

NARRATIVE: CASE EVENT DATE: 20170326
